FAERS Safety Report 4595508-2 (Version None)
Quarter: 2005Q1

REPORT INFORMATION
  Report Type: 
  Country: None (occurrence: None)
  Receive Date: 20050224
  Receipt Date: 20050207
  Transmission Date: 20050727
  Serious: Yes (Death, Other)
  Sender: FDA-Public Use
  Company Number: USA050290147

PATIENT
  Age: 78 Year
  Sex: Female

DRUGS (1)
  1. ZYPREXA [Suspect]
     Indication: BIPOLAR DISORDER
     Dosage: 2.5 MG/2 DAY

REACTIONS (9)
  - DIVERTICULITIS [None]
  - FALL [None]
  - HIP FRACTURE [None]
  - INFECTION [None]
  - INTESTINAL PERFORATION [None]
  - INTESTINAL PROLAPSE [None]
  - LIVER DISORDER [None]
  - RENAL DISORDER [None]
  - SPINAL FRACTURE [None]
